FAERS Safety Report 4987533-4 (Version None)
Quarter: 2006Q2

REPORT INFORMATION
  Report Type: 
  Country: None (occurrence: None)
  Receive Date: 20060501
  Receipt Date: 20051104
  Transmission Date: 20061013
  Serious: Yes (Disabling, Other)
  Sender: FDA-Public Use
  Company Number: US-MERCK-0511USA01073

PATIENT
  Sex: Female
  Weight: 105 kg

DRUGS (51)
  1. CARISOPRODOL [Concomitant]
     Route: 065
  2. CELEXA [Concomitant]
     Route: 065
  3. CHROMAGEN CAPSULES [Concomitant]
     Route: 065
  4. DARVOCET [Concomitant]
     Route: 065
  5. DIAZEPAM [Concomitant]
     Route: 065
  6. EFFEXOR [Concomitant]
     Route: 065
  7. FIORICET TABLETS [Concomitant]
     Route: 065
  8. CHONDROITIN SULFATE SODIUM AND GLUCOSAMINE SULFATE [Concomitant]
     Route: 065
  9. HEPARIN [Concomitant]
     Route: 065
  10. HEPARIN LOCK FLUSH SOLUTION (WYETH) [Concomitant]
     Route: 065
  11. INTERFERON BETA [Concomitant]
     Route: 065
  12. KLONOPIN [Concomitant]
     Route: 065
  13. LEVOXYL [Concomitant]
     Route: 065
  14. LIPITOR [Concomitant]
     Route: 065
  15. LORCET-HD [Concomitant]
     Route: 065
  16. MAXALT [Concomitant]
     Route: 065
  17. MEVACOR [Concomitant]
     Route: 065
  18. MIDRIN [Concomitant]
     Route: 065
  19. NEURONTIN [Concomitant]
     Route: 065
  20. NEXIUM [Concomitant]
     Route: 065
  21. NORCO [Concomitant]
     Route: 065
  22. PAMELOR [Concomitant]
     Route: 065
  23. SODIUM CHLORIDE [Concomitant]
     Route: 065
  24. PLAQUENIL [Concomitant]
     Route: 065
  25. PREDNISONE [Concomitant]
     Route: 065
  26. PRILOSEC [Concomitant]
     Route: 065
  27. PROVIGIL [Concomitant]
     Route: 065
  28. SKELAXIN [Concomitant]
     Route: 065
  29. SOLU-MEDROL [Concomitant]
     Route: 065
  30. SOMA [Concomitant]
     Route: 065
  31. GASTROINTESTINAL PREPARATIONS (UNSPECIFIED) [Concomitant]
     Route: 065
  32. TOPAMAX [Concomitant]
     Route: 065
  33. TRAZODONE HYDROCHLORIDE [Concomitant]
     Route: 065
  34. TYSABRI [Concomitant]
     Route: 065
  35. ULTRACET [Concomitant]
     Route: 065
  36. VICODIN [Concomitant]
     Route: 065
  37. VICOPROFEN [Concomitant]
     Route: 065
  38. WELLBUTRIN [Concomitant]
     Route: 065
  39. ZANAFLEX [Concomitant]
     Route: 065
  40. ZOLOFT [Concomitant]
     Route: 065
  41. BUPROPION HYDROCHLORIDE [Concomitant]
     Route: 065
  42. ACETAMINOPHEN AND BUTALBITAL [Concomitant]
     Route: 065
  43. VIOXX [Suspect]
     Indication: ARTHRITIS
     Route: 048
     Dates: start: 20000501, end: 20040101
  44. ADVIL [Concomitant]
     Route: 065
  45. ACIPHEX [Concomitant]
     Route: 065
  46. ALLEGRA [Concomitant]
     Route: 065
  47. AMBIEN [Concomitant]
     Route: 065
  48. AMITRIPTYLINE HYDROCHLORIDE [Concomitant]
     Route: 065
  49. AVONEX [Concomitant]
     Route: 065
  50. BETASERON [Concomitant]
     Route: 065
  51. BEXTRA [Concomitant]
     Route: 065

REACTIONS (10)
  - ABDOMINAL PAIN [None]
  - ARTHRALGIA [None]
  - CARPAL TUNNEL SYNDROME [None]
  - CHEST DISCOMFORT [None]
  - COUGH [None]
  - FIBROMYALGIA [None]
  - GASTROOESOPHAGEAL REFLUX DISEASE [None]
  - MULTIPLE SCLEROSIS [None]
  - MYOCARDIAL INFARCTION [None]
  - OSTEOARTHRITIS [None]
